FAERS Safety Report 6876928-X (Version None)
Quarter: 2010Q3

REPORT INFORMATION
  Report Type: 
  Country: None (occurrence: None)
  Receive Date: 20100727
  Receipt Date: 20100716
  Transmission Date: 20110219
  Serious: Yes (Hospitalization)
  Sender: FDA-Public Use
  Company Number: JP-ELI_LILLY_AND_COMPANY-JP201006002974

PATIENT
  Sex: Male
  Weight: 65 kg

DRUGS (15)
  1. PEMETREXED [Suspect]
     Indication: NON-SMALL CELL LUNG CANCER
     Dosage: 500 MG/M2, OTHER
     Route: 042
     Dates: start: 20100531, end: 20100531
  2. CARBOPLATIN [Concomitant]
     Indication: NON-SMALL CELL LUNG CANCER
     Dosage: UNK, OTHER
     Route: 042
     Dates: start: 20100531, end: 20100531
  3. PANVITAN [Concomitant]
     Dosage: 1 G, DAILY (1/D)
     Route: 048
     Dates: start: 20100524
  4. VITAMIN B-12 [Concomitant]
     Dosage: 1 MG, DAILY (1/D)
     Route: 030
     Dates: start: 20100524
  5. OXYCONTIN [Concomitant]
     Indication: ANALGESIC THERAPY
     Dosage: 5 MG, 2/D
     Route: 048
     Dates: start: 20100524, end: 20100605
  6. OXINORM [Concomitant]
     Indication: ANALGESIC THERAPY
     Dosage: 2.5 MG, AS NEEDED
     Route: 048
     Dates: start: 20100524
  7. MAGMITT [Concomitant]
     Indication: CONSTIPATION
     Dosage: 330 MG, 3/D
     Route: 048
     Dates: start: 20100524
  8. NOVAMIN [Concomitant]
     Indication: PROPHYLAXIS OF NAUSEA AND VOMITING
     Dosage: 5 MG, 3/D
     Route: 048
     Dates: start: 20100524, end: 20100605
  9. LIORESAL [Concomitant]
     Indication: HICCUPS
     Dosage: 5 MG, AS NEEDED
     Route: 048
     Dates: start: 20100601, end: 20100606
  10. RHYTHMY [Concomitant]
     Indication: INSOMNIA
     Dosage: 2 MG, AS NEEDED
     Route: 048
     Dates: start: 20100602
  11. NABOAL                             /00372302/ [Concomitant]
     Indication: ANALGESIC THERAPY
     Dosage: 37.5 MG, 2/D
     Route: 048
     Dates: start: 20100603, end: 20100610
  12. DEXART [Concomitant]
     Indication: PROPHYLAXIS OF NAUSEA AND VOMITING
     Dosage: 6.6 MG, AS NEEDED
     Route: 042
     Dates: start: 20100605, end: 20100606
  13. PRIMPERAN TAB [Concomitant]
     Indication: PROPHYLAXIS OF NAUSEA AND VOMITING
     Dosage: 10 MG, AS NEEDED
     Route: 042
     Dates: start: 20100605, end: 20100608
  14. VITAMEDIN [Concomitant]
     Indication: VITAMIN SUPPLEMENTATION
     Dosage: 2 MG, AS NEEDED
     Route: 042
     Dates: start: 20100605, end: 20100608
  15. DUROTEP [Concomitant]
     Indication: ANALGESIC THERAPY
     Dosage: 2.1 MG, UNK
     Route: 062
     Dates: start: 20100605, end: 20100609

REACTIONS (1)
  - GASTRIC ULCER [None]
